FAERS Safety Report 10867164 (Version 2)
Quarter: 2015Q2

REPORT INFORMATION
  Report Type: Spontaneous
  Country: IT (occurrence: IT)
  Receive Date: 20150225
  Receipt Date: 20150511
  Transmission Date: 20150821
  Serious: Yes (Other)
  Sender: FDA-Public Use
  Company Number: IT-SA-2015SA023107

PATIENT
  Age: 90 Year
  Sex: Female

DRUGS (7)
  1. APROVEL [Suspect]
     Active Substance: IRBESARTAN
     Route: 048
     Dates: start: 20140101
  2. EUTIROX [Concomitant]
     Active Substance: LEVOTHYROXINE SODIUM
     Dosage: 25 MICROGRAMS TABLET ^ 50 TABLETS
  3. SIMVASTATIN. [Concomitant]
     Active Substance: SIMVASTATIN
  4. APROVEL [Suspect]
     Active Substance: IRBESARTAN
     Route: 048
     Dates: start: 20140402, end: 20150218
  5. TAVOR [Concomitant]
     Active Substance: LORAZEPAM
     Dosage: 1 MG TABLET, 20 TABLETS
  6. LASIX [Suspect]
     Active Substance: FUROSEMIDE
     Route: 048
     Dates: start: 20140101, end: 20150218
  7. ZYLORIC [Concomitant]
     Active Substance: ALLOPURINOL
     Dosage: 100 MG TABLET^ 50 DIVISIBLE TABLETS

REACTIONS (1)
  - Syncope [Recovered/Resolved]

NARRATIVE: CASE EVENT DATE: 20150218
